FAERS Safety Report 8441649 (Version 10)
Quarter: 2014Q1

REPORT INFORMATION
  Report Type: Spontaneous
  Country: GB (occurrence: GB)
  Receive Date: 20120305
  Receipt Date: 20140123
  Transmission Date: 20141002
  Serious: Yes (Life-Threatening, Hospitalization, Disabling, Other)
  Sender: FDA-Public Use
  Company Number: PHFR2012GB001385

PATIENT
  Age: 16 Year
  Sex: Male

DRUGS (7)
  1. CLOZARIL [Suspect]
     Indication: SCHIZOPHRENIA
     Dosage: 200 MG, QD (DAILY)
     Route: 048
  2. CLOZARIL [Suspect]
     Dosage: UNK
     Route: 048
     Dates: start: 2007
  3. CLOZARIL [Suspect]
     Dosage: UNK
     Route: 048
     Dates: start: 20090104, end: 20121004
  4. CLONAZEPAM [Concomitant]
     Indication: ANXIETY
     Dosage: 0.75 MG, DAILY
     Route: 048
     Dates: start: 2007
  5. CLONAZEPAM [Concomitant]
     Dosage: 0.5 MG, BID
     Route: 048
  6. ATENOLOL [Concomitant]
     Indication: TACHYCARDIA
     Dosage: 50 MG, UNK
     Route: 048
     Dates: start: 2007
  7. ATENOLOL [Concomitant]
     Dosage: 10 MG, UNK
     Route: 048

REACTIONS (6)
  - Mitral valve incompetence [Recovered/Resolved with Sequelae]
  - Cardiac murmur [Recovering/Resolving]
  - Malaise [Unknown]
  - Chordae tendinae rupture [Recovered/Resolved]
  - Influenza like illness [Recovered/Resolved]
  - Cardiomyopathy [Not Recovered/Not Resolved]
